FAERS Safety Report 20204759 (Version 1)
Quarter: 2021Q4

REPORT INFORMATION
  Report Type: Spontaneous
  Country: DE (occurrence: DE)
  Receive Date: 20211220
  Receipt Date: 20211220
  Transmission Date: 20220304
  Serious: Yes (Other)
  Sender: FDA-Public Use
  Company Number: None

PATIENT
  Age: 59 Year
  Sex: Female

DRUGS (1)
  1. MYCOPHENOLATE MOFETIL [Suspect]
     Active Substance: MYCOPHENOLATE MOFETIL
     Indication: Product used for unknown indication
     Dosage: 2 GRAM, QD
     Route: 065
     Dates: start: 201710

REACTIONS (4)
  - Lupus nephritis [Unknown]
  - Constipation [Unknown]
  - Proteinuria [Unknown]
  - Blood creatinine increased [Unknown]
